FAERS Safety Report 5173303-3 (Version None)
Quarter: 2006Q4

REPORT INFORMATION
  Report Type: 
  Country: None (occurrence: None)
  Receive Date: 20061214
  Receipt Date: 20061205
  Transmission Date: 20070319
  Serious: Yes (Hospitalization)
  Sender: FDA-Public Use
  Company Number: 2006CG01991

PATIENT
  Age: 70 Year
  Sex: Female

DRUGS (3)
  1. ARIMIDEX [Suspect]
     Indication: BREAST CANCER
     Route: 048
     Dates: start: 20010101
  2. VASTAREL [Suspect]
     Route: 048
     Dates: start: 20030101
  3. XALATAN [Suspect]
     Route: 047
     Dates: start: 20060201

REACTIONS (2)
  - CUTANEOUS VASCULITIS [None]
  - LEUKOCYTOCLASTIC VASCULITIS [None]
